FAERS Safety Report 10450810 (Version 8)
Quarter: 2015Q2

REPORT INFORMATION
  Report Type: Report from Study
  Country: US (occurrence: US)
  Receive Date: 20140912
  Receipt Date: 20150521
  Transmission Date: 20150821
  Serious: Yes (Other)
  Sender: FDA-Public Use
  Company Number: US-SA-2014SA112188

PATIENT
  Age: 58 Year
  Sex: Female

DRUGS (3)
  1. COPAXONE [Concomitant]
     Active Substance: GLATIRAMER ACETATE
  2. AUBAGIO [Suspect]
     Active Substance: TERIFLUNOMIDE
     Indication: MULTIPLE SCLEROSIS
     Route: 048
     Dates: start: 20140812
  3. AUBAGIO [Suspect]
     Active Substance: TERIFLUNOMIDE
     Indication: MULTIPLE SCLEROSIS
     Dosage: 2 OF THE 7 MG PILLS
     Route: 048
     Dates: start: 2014, end: 201503

REACTIONS (21)
  - Urinary incontinence [Unknown]
  - Weight increased [Unknown]
  - Dry mouth [Unknown]
  - Feeling hot [Unknown]
  - Muscular weakness [Not Recovered/Not Resolved]
  - Lethargy [Unknown]
  - Feeling abnormal [Unknown]
  - Speech disorder [Not Recovered/Not Resolved]
  - Depressed mood [Unknown]
  - Gait disturbance [Not Recovered/Not Resolved]
  - Condition aggravated [Not Recovered/Not Resolved]
  - Urine odour abnormal [Unknown]
  - Hypoaesthesia [Unknown]
  - Burning sensation [Not Recovered/Not Resolved]
  - Drug ineffective [Unknown]
  - Dysarthria [Unknown]
  - Diarrhoea [Unknown]
  - Foot deformity [Not Recovered/Not Resolved]
  - Feeling abnormal [Unknown]
  - Skin disorder [Unknown]
  - Drug dose omission [Unknown]

NARRATIVE: CASE EVENT DATE: 2014
